FAERS Safety Report 25705868 (Version 1)
Quarter: 2025Q3

REPORT INFORMATION
  Report Type: Spontaneous
  Country: US (occurrence: US)
  Receive Date: 20250820
  Receipt Date: 20250820
  Transmission Date: 20251020
  Serious: No
  Sender: BAYER HEALTHCARE PHARMACEUTICALS INC.
  Company Number: US-BAYER-2025A109203

PATIENT
  Sex: Female

DRUGS (1)
  1. BETASERON [Suspect]
     Active Substance: INTERFERON BETA-1B
     Indication: Multiple sclerosis
     Dosage: 0.3 MG, QOD, DOSE/FREQUENCY: ADD 1.2 ML DILUENT TO VIAL AND MIX GENTLY. INJECT 1 ML
     Route: 058
     Dates: start: 202408

REACTIONS (1)
  - Drug ineffective [None]
